FAERS Safety Report 9137497 (Version 1)
Quarter: 2013Q1

REPORT INFORMATION
  Report Type: Spontaneous
  Country: DE (occurrence: DE)
  Receive Date: 20130304
  Receipt Date: 20130304
  Transmission Date: 20140127
  Serious: Yes (Hospitalization)
  Sender: FDA-Public Use
  Company Number: PHHY2013DE020127

PATIENT
  Age: 68 Year
  Sex: Female
  Weight: 53 kg

DRUGS (13)
  1. SIMULECT [Suspect]
     Indication: RENAL TRANSPLANT
     Dosage: 20 MG, QD (1 PER DAY)
     Route: 042
     Dates: start: 20100815, end: 20100819
  2. CELLCEPT [Suspect]
     Indication: RENAL TRANSPLANT
     Dosage: 500 MG, BID
     Route: 048
     Dates: start: 20100815
  3. CELLCEPT [Suspect]
     Dosage: 14 MG, UNK
     Route: 048
     Dates: end: 20101001
  4. CELLCEPT [Suspect]
     Dosage: UNK UKN, UNK
     Route: 048
     Dates: start: 20110530
  5. ADVAGRAF [Suspect]
     Indication: RENAL TRANSPLANT
     Dosage: 20 MG, QD (1 PER DAY)
     Route: 048
     Dates: start: 20100815
  6. ADVAGRAF [Suspect]
     Dosage: 1000 MG, UNK
     Route: 048
     Dates: end: 20101001
  7. ADVAGRAF [Suspect]
     Dosage: 4 MG, UNK
     Route: 048
     Dates: start: 20110601, end: 20110603
  8. SOLU DECORTIN H [Suspect]
     Indication: RENAL TRANSPLANT
     Dosage: 25 MG, QD (1 PER DAY)
     Route: 048
     Dates: start: 20100815, end: 20100822
  9. AMLODIPINE [Concomitant]
     Dosage: 10 MG, UNK
  10. IDEOS [Concomitant]
     Dosage: 1 DF, UNK
  11. CHOLECALCIFEROL [Concomitant]
  12. INEGY [Concomitant]
  13. PANTOL [Concomitant]
     Dosage: 40 MG, UNK

REACTIONS (8)
  - Renal failure acute [Recovered/Resolved]
  - Kidney transplant rejection [Recovered/Resolved]
  - Toxicity to various agents [Recovered/Resolved]
  - Blood creatinine increased [Recovered/Resolved]
  - Urinary tract infection [Recovered/Resolved]
  - Pyrexia [Recovered/Resolved]
  - Cytomegalovirus infection [Recovered/Resolved]
  - Fatigue [Unknown]
